FAERS Safety Report 5677224-9 (Version None)
Quarter: 2008Q1

REPORT INFORMATION
  Report Type: 
  Country: None (occurrence: None)
  Receive Date: 20080324
  Receipt Date: 20080310
  Transmission Date: 20080703
  Serious: Yes (Other)
  Sender: FDA-Public Use
  Company Number: CA-AMGEN-US270495

PATIENT
  Age: 17 Year
  Sex: Female

DRUGS (3)
  1. ENBREL [Suspect]
     Indication: JUVENILE ARTHRITIS
     Route: 058
     Dates: start: 20040501, end: 20060101
  2. PREDNISONE TAB [Concomitant]
     Indication: JUVENILE ARTHRITIS
     Dosage: UNKNOWN
     Route: 065
     Dates: start: 20040501
  3. METHOTREXATE [Concomitant]
     Indication: JUVENILE ARTHRITIS
     Dosage: UNKNOWN
     Route: 065
     Dates: start: 19970101, end: 20040801

REACTIONS (5)
  - ARTHRITIS [None]
  - CONDITION AGGRAVATED [None]
  - GRANULOMATOUS LIVER DISEASE [None]
  - NEUTROPENIA [None]
  - THROMBOCYTOPENIA [None]
